FAERS Safety Report 14822514 (Version 2)
Quarter: 2018Q4

REPORT INFORMATION
  Report Type: Report from Study
  Country: None (occurrence: IT)
  Receive Date: 20180427
  Receipt Date: 20181214
  Transmission Date: 20190204
  Serious: Yes (Death, Other)
  Sender: FDA-Public Use
  Company Number: IT-BAXTER-2018BAX012288

PATIENT
  Sex: Female

DRUGS (6)
  1. ENDOXAN BAXTER [Suspect]
     Active Substance: CYCLOPHOSPHAMIDE
     Indication: OVARIAN CANCER
     Route: 065
  2. VEPESID [Suspect]
     Active Substance: ETOPOSIDE
     Dosage: 100 MG/M2 (DAY 1, 2, 3), Q3WK
     Route: 042
  3. DOXORUBICIN [Suspect]
     Active Substance: DOXORUBICIN
     Indication: OVARIAN CANCER
     Dosage: 6 COURSES,1 CYCLICAL
     Route: 065
  4. DOXORUBICIN [Suspect]
     Active Substance: DOXORUBICIN
     Dosage: 40 MG/M2, DAY 1, Q3WK
     Route: 042
  5. ENDOXAN BAXTER [Suspect]
     Active Substance: CYCLOPHOSPHAMIDE
     Dosage: 500 MG/M2, DAY 1, Q3WK
     Route: 042
  6. VEPESID [Suspect]
     Active Substance: ETOPOSIDE
     Indication: OVARIAN CANCER
     Dosage: 6 COURSES, 1 CYCLICAL
     Route: 065

REACTIONS (3)
  - Disease progression [Fatal]
  - Bone marrow failure [Unknown]
  - Bone marrow failure [Fatal]
